FAERS Safety Report 25944898 (Version 1)
Quarter: 2025Q4

REPORT INFORMATION
  Report Type: Spontaneous
  Country: US (occurrence: US)
  Receive Date: 20251021
  Receipt Date: 20251021
  Transmission Date: 20260117
  Serious: No
  Sender: Phathom Pharmaceuticals
  Company Number: US-PHATHOM PHARMACEUTICALS INC.-2025PHT01736

PATIENT
  Age: 71 Year
  Sex: Female

DRUGS (16)
  1. VOQUEZNA [Suspect]
     Active Substance: VONOPRAZAN FUMARATE
     Dosage: UNK
     Route: 048
     Dates: start: 20250409
  2. ZOFRAN [Concomitant]
     Active Substance: ONDANSETRON HYDROCHLORIDE
  3. ACTEMRA [Concomitant]
     Active Substance: TOCILIZUMAB
  4. EXCEDRIN EXTRA STRENGTH [Concomitant]
     Active Substance: ACETAMINOPHEN\ASPIRIN\CAFFEINE
  5. TYLENOL EXTRA STRENGTH [Concomitant]
     Active Substance: ACETAMINOPHEN
  6. OXYCODONE [Concomitant]
     Active Substance: OXYCODONE
  7. LUNESTA [Concomitant]
     Active Substance: ESZOPICLONE
  8. BUDESONIDE [Concomitant]
     Active Substance: BUDESONIDE
  9. ESTRADIOL [Concomitant]
     Active Substance: ESTRADIOL
  10. DILAUDID [Concomitant]
     Active Substance: HYDROMORPHONE HYDROCHLORIDE
  11. TRAMADOL [Concomitant]
     Active Substance: TRAMADOL
  12. METOPROLOL SUCCINATE [Concomitant]
     Active Substance: METOPROLOL SUCCINATE
  13. COLACE [Concomitant]
     Active Substance: DOCUSATE SODIUM
  14. HYDROCHLOROTHIAZIDE\LISINOPRIL [Concomitant]
     Active Substance: HYDROCHLOROTHIAZIDE\LISINOPRIL
  15. GABAPENTIN [Concomitant]
     Active Substance: GABAPENTIN
  16. PROZAC [Concomitant]
     Active Substance: FLUOXETINE HYDROCHLORIDE

REACTIONS (2)
  - Skin exfoliation [Unknown]
  - Gastrooesophageal reflux disease [Not Recovered/Not Resolved]

NARRATIVE: CASE EVENT DATE: 20250101
